FAERS Safety Report 16360923 (Version 9)
Quarter: 2024Q2

REPORT INFORMATION
  Report Type: Report from Study
  Country: US (occurrence: US)
  Receive Date: 20190528
  Receipt Date: 20240624
  Transmission Date: 20240716
  Serious: Yes (Hospitalization, Other)
  Sender: FDA-Public Use
  Company Number: US-KYOWAKIRIN-2019BKK008089

PATIENT

DRUGS (18)
  1. BUROSUMAB [Suspect]
     Active Substance: BUROSUMAB
     Indication: Hereditary hypophosphataemic rickets
     Dosage: UNK, 1X/4 WEEKS
     Route: 065
     Dates: start: 20181009
  2. BUROSUMAB [Suspect]
     Active Substance: BUROSUMAB
     Dosage: 50 MG, 1X/4 WEEKS
     Route: 058
     Dates: start: 201904
  3. BUROSUMAB [Suspect]
     Active Substance: BUROSUMAB
     Dosage: 50 MG, 1X/4 WEEKS
     Route: 058
     Dates: start: 201904
  4. BUROSUMAB [Suspect]
     Active Substance: BUROSUMAB
     Dosage: UNK, 1X/4 WEEKS
     Route: 065
     Dates: start: 20240529
  5. ERGOCALCIFEROL [Concomitant]
     Active Substance: ERGOCALCIFEROL
     Indication: Product used for unknown indication
     Dosage: UNK, 50000
     Route: 065
  6. ACETAMINOPHEN [Concomitant]
     Active Substance: ACETAMINOPHEN
     Indication: Product used for unknown indication
     Dosage: UNK, 325
     Route: 065
  7. HYDROMORPHONE [Concomitant]
     Active Substance: HYDROMORPHONE
     Indication: Product used for unknown indication
     Dosage: 2 MG
     Route: 065
  8. IBUPROFEN [Concomitant]
     Active Substance: IBUPROFEN
     Indication: Product used for unknown indication
     Dosage: 800 MG, PRN
     Route: 048
  9. IBUPROFEN [Concomitant]
     Active Substance: IBUPROFEN
     Dosage: 600 MG
     Route: 065
  10. METHYLPREDNISOLONE [Concomitant]
     Active Substance: METHYLPREDNISOLONE
     Indication: Product used for unknown indication
     Dosage: 4 MG
     Route: 065
  11. AMITRIPTYLINE [Concomitant]
     Active Substance: AMITRIPTYLINE
     Indication: Product used for unknown indication
     Dosage: 50 MG, QD
     Route: 048
  12. CARVEDILOL [Concomitant]
     Active Substance: CARVEDILOL
     Indication: Product used for unknown indication
     Dosage: 25 MG, BID
     Route: 048
  13. DIAZEPAM [Concomitant]
     Active Substance: DIAZEPAM
     Indication: Product used for unknown indication
     Dosage: 2 MG
     Route: 065
  14. COLACE [Concomitant]
     Active Substance: DOCUSATE SODIUM
     Indication: Product used for unknown indication
     Dosage: 100 MG
     Route: 065
  15. GABAPENTIN [Concomitant]
     Active Substance: GABAPENTIN
     Indication: Product used for unknown indication
     Dosage: 300 MG, TID
     Route: 065
  16. HYDRALAZINE [Concomitant]
     Active Substance: HYDRALAZINE HYDROCHLORIDE
     Indication: Product used for unknown indication
     Dosage: 50 MG, TID
     Route: 048
  17. HYDROCHLOROTHIAZIDE [Concomitant]
     Active Substance: HYDROCHLOROTHIAZIDE
     Indication: Product used for unknown indication
     Dosage: 12.5 MG, QD
     Route: 048
  18. MORPHINE [Concomitant]
     Active Substance: MORPHINE
     Indication: Product used for unknown indication
     Dosage: 15 MG, PRN
     Route: 048

REACTIONS (13)
  - Joint swelling [Unknown]
  - Kidney infection [Unknown]
  - Arthralgia [Not Recovered/Not Resolved]
  - Pain in extremity [Recovering/Resolving]
  - Cardiac failure [Unknown]
  - Foot fracture [Unknown]
  - Lower limb fracture [Unknown]
  - Panic attack [Unknown]
  - Lung disorder [Unknown]
  - Attention deficit hyperactivity disorder [Unknown]
  - Foot fracture [Unknown]
  - Therapy interrupted [Unknown]
  - Product dose omission issue [Not Recovered/Not Resolved]

NARRATIVE: CASE EVENT DATE: 20190101
